FAERS Safety Report 10196062 (Version 2)
Quarter: 2014Q2

REPORT INFORMATION
  Report Type: Spontaneous
  Country: US (occurrence: US)
  Receive Date: 20140527
  Receipt Date: 20140611
  Transmission Date: 20141212
  Serious: No
  Sender: FDA-Public Use
  Company Number: US-PFIZER INC-2014142829

PATIENT
  Age: 61 Year
  Sex: Female

DRUGS (10)
  1. XELJANZ [Suspect]
     Indication: RHEUMATOID ARTHRITIS
     Dosage: 5 MG, 2X/DAY
     Route: 048
  2. SINGULAIR [Concomitant]
     Dosage: 10 MG
     Route: 048
  3. PROTONIX [Concomitant]
     Dosage: 40 MG
     Route: 048
  4. LOMOTIL [Concomitant]
     Dosage: 2.5 MG
     Route: 048
  5. ATENOLOL [Concomitant]
     Dosage: 25 MG
     Route: 048
  6. ETODOLAC [Concomitant]
     Dosage: 400 MG
     Route: 048
  7. LOSARTAN POTASSIUM [Concomitant]
     Dosage: 25 MG
     Route: 048
  8. NEURONTIN [Concomitant]
     Dosage: 100 MG
     Route: 048
  9. LIDODERM [Concomitant]
     Dosage: 5 %
  10. CALCIUM+ D [Concomitant]
     Dosage: UNK
     Route: 048

REACTIONS (1)
  - Drug ineffective [Unknown]
